FAERS Safety Report 18114771 (Version 1)
Quarter: 2020Q3

REPORT INFORMATION
  Report Type: Spontaneous
  Country: US (occurrence: US)
  Receive Date: 20200805
  Receipt Date: 20200805
  Transmission Date: 20201103
  Serious: Yes (Other)
  Sender: FDA-Public Use
  Company Number: US-LUPIN PHARMACEUTICALS INC.-2020-02935

PATIENT
  Sex: Female

DRUGS (1)
  1. LEVOTHYROXINE SODIUM TABLETS [Suspect]
     Active Substance: LEVOTHYROXINE SODIUM
     Indication: HYPOTHYROIDISM
     Dosage: UNK
     Route: 065

REACTIONS (7)
  - Fatigue [Unknown]
  - Mood altered [Unknown]
  - Pain in extremity [Unknown]
  - Myalgia [Unknown]
  - Hypothyroidism [Unknown]
  - Dysphonia [Unknown]
  - Peripheral swelling [Unknown]
